FAERS Safety Report 10551898 (Version 1)
Quarter: 2014Q4

REPORT INFORMATION
  Report Type: Spontaneous
  Country: US (occurrence: None)
  Receive Date: 20141027
  Receipt Date: 20141027
  Transmission Date: 20150529
  Serious: Yes (Hospitalization)
  Sender: FDA-Public Use
  Company Number: QSC-2014-0764

PATIENT
  Age: 34 Year
  Sex: Female

DRUGS (16)
  1. CLONAZEPAM (CLONAZEPAM) [Concomitant]
  2. LISINOPRIL (LISINOPRIL) [Concomitant]
     Active Substance: LISINOPRIL
  3. MULTIVITAMIN?/00097801/ (ASCORBIC ACID, CALCIUM PANTOTHENATE, ERGOCALCIFEROL, NICOTINAMIDE, PYRIDOXINE HYDROCHLORIDE, RETINOL, RIBOFLAVIN, THIAMINE HYDROCHLORIDE) [Concomitant]
  4. CALCIUM (CALCIUM) [Concomitant]
     Active Substance: CALCIUM
  5. LORATADINE (LORATADINE) [Concomitant]
  6. TYLENOL /00020001/ (PARACETAMOL) [Concomitant]
  7. VITAMIN D /00107901/ (ERGOCALCIFEROL) [Concomitant]
  8. H.P. ACTHAR [Suspect]
     Active Substance: CORTICOTROPIN
     Indication: PROTEINURIA
     Dosage: 80 UNITS
     Route: 058
     Dates: start: 20140812
  9. GENERESS FE [Suspect]
     Active Substance: ETHINYL ESTRADIOL\FERROUS FUMARATE\NORETHINDRONE
     Route: 048
     Dates: start: 20130910, end: 201410
  10. PREDNISONE (PREDNISONE) [Concomitant]
     Active Substance: PREDNISONE
  11. ALENDRONATE (ALENDRONATE SODIUM) [Concomitant]
     Active Substance: ALENDRONATE SODIUM
  12. SUDOGEST (PSEUDOEPHEDRINE HYDROCHLORIDE) [Concomitant]
  13. FAMCICLOVIR (FAMCICLOVIR) [Concomitant]
  14. FLUTICASONE [Concomitant]
     Active Substance: FLUTICASONE\FLUTICASONE PROPIONATE
  15. OMEPRAZOLE (OMEPRAZOLE) [Concomitant]
     Active Substance: OMEPRAZOLE
  16. MOMETASONE (MOMETASONE) [Concomitant]

REACTIONS (5)
  - Pain in extremity [None]
  - Haemoptysis [None]
  - Deep vein thrombosis [None]
  - Pulmonary embolism [None]
  - Pleuritic pain [None]

NARRATIVE: CASE EVENT DATE: 20141009
